FAERS Safety Report 7956648-0 (Version None)
Quarter: 2011Q4

REPORT INFORMATION
  Report Type: 
  Country: None (occurrence: None)
  Receive Date: 20111205
  Receipt Date: 20111201
  Transmission Date: 20120403
  Serious: No
  Sender: FDA-Public Use
  Company Number: US-BAYER-2011-115869

PATIENT
  Sex: Female

DRUGS (2)
  1. MIRENA [Suspect]
     Indication: CONTRACEPTION
     Dosage: 20 ?G/D, CONT
     Route: 015
     Dates: start: 20110921, end: 20110921
  2. ORTHO TRI-CYCLEN [Concomitant]
     Indication: UTERINE LEIOMYOMA

REACTIONS (3)
  - PELVIC PAIN [None]
  - DEVICE EXPULSION [None]
  - UTERINE LEIOMYOMA [None]
